FAERS Safety Report 4981796-7 (Version None)
Quarter: 2006Q2

REPORT INFORMATION
  Report Type: 
  Country: None (occurrence: None)
  Receive Date: 20060425
  Receipt Date: 20060424
  Transmission Date: 20061013
  Serious: Yes (Death)
  Sender: FDA-Public Use
  Company Number: US200604002475

PATIENT
  Age: 38 Year
  Sex: Male

DRUGS (4)
  1. PAXIL [Suspect]
     Indication: DRUG USE FOR UNKNOWN INDICATION
     Route: 048
  2. ZYPREXA [Concomitant]
  3. GABITRIL [Concomitant]
  4. ABILIFY [Concomitant]

REACTIONS (7)
  - CLAVICLE FRACTURE [None]
  - COMPLETED SUICIDE [None]
  - FALL [None]
  - HALLUCINATION [None]
  - INTENTIONAL SELF-INJURY [None]
  - LACERATION [None]
  - SUICIDE ATTEMPT [None]
